FAERS Safety Report 12196363 (Version 2)
Quarter: 2016Q2

REPORT INFORMATION
  Report Type: Report from Study
  Country: CA (occurrence: CA)
  Receive Date: 20160321
  Receipt Date: 20160401
  Transmission Date: 20160815
  Serious: Yes (Hospitalization)
  Sender: FDA-Public Use
  Company Number: CA-ABBVIE-16K-028-1583084-00

PATIENT
  Age: 56 Year
  Sex: Male
  Weight: 61.29 kg

DRUGS (2)
  1. HUMIRA [Suspect]
     Active Substance: ADALIMUMAB
     Route: 058
     Dates: start: 20160317
  2. HUMIRA [Suspect]
     Active Substance: ADALIMUMAB
     Indication: PSORIASIS
     Route: 058
     Dates: start: 20150211, end: 20160307

REACTIONS (9)
  - Dizziness [Unknown]
  - Vertigo [Unknown]
  - Osteoarthritis [Unknown]
  - Electrocardiogram abnormal [Unknown]
  - Radius fracture [Recovering/Resolving]
  - Syncope [Recovered/Resolved]
  - Wrist fracture [Not Recovered/Not Resolved]
  - Pyelonephritis acute [Unknown]
  - Pain [Not Recovered/Not Resolved]

NARRATIVE: CASE EVENT DATE: 20160220
